FAERS Safety Report 8919042 (Version 2)
Quarter: 2012Q4

REPORT INFORMATION
  Report Type: 
  Country: JP (occurrence: JP)
  Receive Date: 20121121
  Receipt Date: 20121226
  Transmission Date: 20130627
  Serious: Yes (Other)
  Sender: FDA-Public Use
  Company Number: JP-BAYER-2012-118585

PATIENT
  Age: 75 Year
  Sex: Male

DRUGS (10)
  1. NEXAVAR [Suspect]
     Indication: CARCINOMA HEPATOCELLULAR
     Dosage: UNK
     Route: 048
     Dates: start: 20111221, end: 20120427
  2. NEXAVAR [Suspect]
     Indication: CARCINOMA HEPATOCELLULAR
     Dosage: Daily dose 400 mg
     Route: 048
     Dates: start: 20120518
  3. NEXAVAR [Suspect]
     Indication: CARCINOMA HEPATOCELLULAR
     Dosage: 400 mg, daily
     Dates: start: 20111221, end: 20120309
  4. NEXAVAR [Suspect]
     Indication: CARCINOMA HEPATOCELLULAR
     Dosage: 400 mg, QOD
     Route: 048
     Dates: start: 20120914
  5. URSO [Suspect]
     Indication: HEPATIC CIRRHOSIS
     Dosage: Daily dose 600 mg
     Route: 048
  6. AMINOLEBAN EN [Suspect]
     Indication: HEPATIC CIRRHOSIS
     Dosage: Daily dose 1 DF
     Route: 048
  7. AMINOLEBAN EN [Suspect]
     Indication: OEDEMA
  8. AMINOLEBAN EN [Suspect]
     Indication: ASCITES
  9. LASIX [Suspect]
     Indication: OEDEMA
     Dosage: Daily dose 20 mg
     Route: 048
  10. LASIX [Suspect]
     Indication: ASCITES

REACTIONS (1)
  - Hepatic encephalopathy [Recovering/Resolving]
